FAERS Safety Report 21687418 (Version 5)
Quarter: 2024Q4

REPORT INFORMATION
  Report Type: Report from Study
  Country: US (occurrence: US)
  Receive Date: 20221206
  Receipt Date: 20241014
  Transmission Date: 20250114
  Serious: Yes (Other)
  Sender: TAKEDA
  Company Number: US-TAKEDA-US202000163

PATIENT
  Sex: Female

DRUGS (2)
  1. HUMAN IMMUNOGLOBULIN G [Suspect]
     Active Substance: HUMAN IMMUNOGLOBULIN G
     Indication: Immunodeficiency common variable
     Dosage: UNK
     Route: 042
  2. HUMAN IMMUNOGLOBULIN G [Suspect]
     Active Substance: HUMAN IMMUNOGLOBULIN G
     Indication: Primary immunodeficiency syndrome

REACTIONS (13)
  - Vein rupture [Unknown]
  - Skin infection [Unknown]
  - Arthritis [Unknown]
  - Foot fracture [Unknown]
  - Poor venous access [Unknown]
  - Urticaria chronic [Unknown]
  - Incorrect dose administered [Unknown]
  - Wheezing [Unknown]
  - Burning sensation [Unknown]
  - Hypersensitivity [Unknown]
  - Arthralgia [Unknown]
  - Back pain [Unknown]
  - Fatigue [Unknown]
